FAERS Safety Report 23195613 (Version 2)
Quarter: 2023Q4

REPORT INFORMATION
  Report Type: Report from Study
  Country: FR (occurrence: FR)
  Receive Date: 20231117
  Receipt Date: 20231218
  Transmission Date: 20240110
  Serious: Yes (Hospitalization, Other)
  Sender: FDA-Public Use
  Company Number: FR-ALXN-A202305496AA

PATIENT
  Age: 65 Year
  Sex: Female
  Weight: 58 kg

DRUGS (2)
  1. SOLIRIS [Suspect]
     Active Substance: ECULIZUMAB
     Indication: Atypical haemolytic uraemic syndrome
     Dosage: UNK
     Route: 065
  2. SOLIRIS [Suspect]
     Active Substance: ECULIZUMAB
     Dosage: UNK, Q2W
     Route: 042
     Dates: start: 20230506

REACTIONS (2)
  - Device breakage [Recovered/Resolved]
  - Aortic pseudoaneurysm [Recovered/Resolved]

NARRATIVE: CASE EVENT DATE: 20230416
